FAERS Safety Report 24534001 (Version 1)
Quarter: 2024Q4

REPORT INFORMATION
  Report Type: Spontaneous
  Country: CN (occurrence: CN)
  Receive Date: 20241022
  Receipt Date: 20241022
  Transmission Date: 20250115
  Serious: Yes (Hospitalization, Other)
  Sender: NOVARTIS
  Company Number: CN-002147023-NVSC2024CN203830

PATIENT
  Age: 71 Year
  Sex: Male

DRUGS (4)
  1. SACUBITRIL\VALSARTAN [Suspect]
     Active Substance: SACUBITRIL\VALSARTAN
     Indication: Cardiac valve disease
     Dosage: 100.000 MG, BID
     Route: 048
     Dates: start: 20240910, end: 20240925
  2. SACUBITRIL\VALSARTAN [Suspect]
     Active Substance: SACUBITRIL\VALSARTAN
     Dosage: 50 MG, BID
     Route: 065
  3. DIGOXIN [Concomitant]
     Active Substance: DIGOXIN
     Indication: Cardiac valve disease
     Dosage: 0.125 MG, QD
     Route: 048
     Dates: start: 20240910
  4. METOPROLOL TARTRATE [Concomitant]
     Active Substance: METOPROLOL TARTRATE
     Indication: Cardiac valve disease
     Dosage: 25.000 MG, QD
     Route: 048
     Dates: start: 20240910

REACTIONS (9)
  - Hypotension [Recovering/Resolving]
  - Pain in extremity [Unknown]
  - Atrial fibrillation [Unknown]
  - Arrhythmia [Unknown]
  - Breath sounds abnormal [Unknown]
  - Bundle branch block left [Unknown]
  - Electrocardiogram ST segment abnormal [Unknown]
  - Electrocardiogram abnormal [Unknown]
  - Electrocardiogram low voltage [Unknown]

NARRATIVE: CASE EVENT DATE: 20240925
